FAERS Safety Report 4941026-9 (Version None)
Quarter: 2006Q1

REPORT INFORMATION
  Report Type: 
  Country: None (occurrence: None)
  Receive Date: 20060313
  Receipt Date: 20060307
  Transmission Date: 20060701
  Serious: Yes (Hospitalization)
  Sender: FDA-Public Use
  Company Number: JP-AVENTIS-200610734JP

PATIENT
  Age: 63 Year
  Sex: Female

DRUGS (2)
  1. LASIX [Suspect]
     Indication: DIABETIC NEPHROPATHY
     Route: 042
     Dates: start: 20060304, end: 20060306
  2. LASIX [Concomitant]
     Route: 048
     Dates: start: 20050101, end: 20060303

REACTIONS (2)
  - DRUG ERUPTION [None]
  - FACE OEDEMA [None]
